FAERS Safety Report 18995685 (Version 1)
Quarter: 2021Q1

REPORT INFORMATION
  Report Type: Spontaneous
  Country: US (occurrence: US)
  Receive Date: 20210311
  Receipt Date: 20210311
  Transmission Date: 20210420
  Serious: No
  Sender: FDA-Public Use
  Company Number: US-ALLERGAN-2016362US

PATIENT
  Age: 67 Year
  Sex: Female

DRUGS (4)
  1. VIIBRYD [Suspect]
     Active Substance: VILAZODONE HYDROCHLORIDE
     Indication: DEPRESSION
     Dosage: 20 MG
  2. VIIBRYD [Suspect]
     Active Substance: VILAZODONE HYDROCHLORIDE
     Dosage: 20 MG
     Dates: end: 202003
  3. VIIBRYD [Suspect]
     Active Substance: VILAZODONE HYDROCHLORIDE
     Indication: MAJOR DEPRESSION
     Dosage: 10 MG
  4. VIIBRYD [Suspect]
     Active Substance: VILAZODONE HYDROCHLORIDE
     Dosage: 40 MG, QD
     Dates: start: 202003

REACTIONS (12)
  - Somnolence [Not Recovered/Not Resolved]
  - Constipation [Unknown]
  - Asthenia [Unknown]
  - Aura [Recovered/Resolved]
  - Wrong technique in product usage process [Unknown]
  - Abnormal dreams [Recovered/Resolved]
  - Dizziness [Unknown]
  - Fatigue [Unknown]
  - Cystitis interstitial [Unknown]
  - Faeces hard [Not Recovered/Not Resolved]
  - Inappropriate schedule of product administration [Unknown]
  - Taste disorder [Not Recovered/Not Resolved]

NARRATIVE: CASE EVENT DATE: 202003
